FAERS Safety Report 7430944-8 (Version None)
Quarter: 2011Q2

REPORT INFORMATION
  Report Type: 
  Country: None (occurrence: None)
  Receive Date: 20110419
  Receipt Date: 20110419
  Transmission Date: 20111010
  Serious: Yes (Other)
  Sender: FDA-Public Use
  Company Number: None

PATIENT
  Sex: Female
  Weight: 117 kg

DRUGS (1)
  1. DOCETAXEL [Suspect]
     Indication: BREAST CANCER METASTATIC
     Dosage: 165 MG ONCE IV
     Route: 042
     Dates: start: 20100623

REACTIONS (5)
  - CHEST DISCOMFORT [None]
  - BACK PAIN [None]
  - INFUSION RELATED REACTION [None]
  - FLUSHING [None]
  - HEADACHE [None]
